FAERS Safety Report 15648743 (Version 7)
Quarter: 2020Q2

REPORT INFORMATION
  Report Type: Report from Study
  Country: US (occurrence: US)
  Receive Date: 20181122
  Receipt Date: 20200521
  Transmission Date: 20200713
  Serious: Yes (Other)
  Sender: FDA-Public Use
  Company Number: PHHY2018US160211

PATIENT
  Age: 45 Year
  Sex: Female

DRUGS (2)
  1. IBUPROFEN. [Concomitant]
     Active Substance: IBUPROFEN
     Indication: PAIN
     Dosage: UNK
     Route: 065
     Dates: start: 20170929
  2. GILENYA [Suspect]
     Active Substance: FINGOLIMOD HYDROCHLORIDE
     Indication: MULTIPLE SCLEROSIS
     Dosage: UNK, QD
     Route: 048

REACTIONS (30)
  - Hyperhidrosis [Not Recovered/Not Resolved]
  - Chills [Recovered/Resolved]
  - Hyperphagia [Recovered/Resolved]
  - Ataxia [Recovered/Resolved]
  - Polydipsia [Recovered/Resolved]
  - Otorrhoea [Not Recovered/Not Resolved]
  - Acrochordon [Recovered/Resolved]
  - Lymphadenopathy [Recovered/Resolved]
  - Sleep disorder [Recovered/Resolved]
  - Lymphocyte count decreased [Unknown]
  - Chest discomfort [Recovered/Resolved]
  - Hypersensitivity [Not Recovered/Not Resolved]
  - Palpitations [Recovered/Resolved]
  - Stomatitis [Recovered/Resolved]
  - Seborrhoeic keratosis [Recovered/Resolved]
  - Fatigue [Not Recovered/Not Resolved]
  - Cough [Not Recovered/Not Resolved]
  - Temperature intolerance [Not Recovered/Not Resolved]
  - Abdominal pain [Recovered/Resolved]
  - Disturbance in attention [Not Recovered/Not Resolved]
  - Tinnitus [Recovered/Resolved]
  - Sneezing [Not Recovered/Not Resolved]
  - Polyuria [Recovered/Resolved]
  - Headache [Not Recovered/Not Resolved]
  - Arthralgia [Recovered/Resolved]
  - Eye pain [Not Recovered/Not Resolved]
  - Gait disturbance [Recovered/Resolved]
  - Dizziness [Not Recovered/Not Resolved]
  - Visual impairment [Recovered/Resolved]
  - Myalgia [Recovered/Resolved]

NARRATIVE: CASE EVENT DATE: 20170509
